FAERS Safety Report 6358000-0 (Version None)
Quarter: 2009Q3

REPORT INFORMATION
  Report Type: 
  Country: None (occurrence: None)
  Receive Date: 20090911
  Receipt Date: 20090910
  Transmission Date: 20100115
  Serious: Yes (Death, Hospitalization)
  Sender: FDA-Public Use
  Company Number: AUR-APU-2009-00558

PATIENT
  Age: 1 Day
  Sex: Male

DRUGS (6)
  1. ZIDOVUDINE [Suspect]
     Indication: PROPHYLAXIS AGAINST HIV INFECTION
     Dosage: 4 MG/KG - Q12HOURS
  2. NEVIRAPINE [Suspect]
     Indication: PROPHYLAXIS AGAINST HIV INFECTION
     Dosage: 2 MG/KG - X1
  3. TRUVADA [Suspect]
     Indication: PROPHYLAXIS AGAINST HIV INFECTION
     Dosage: X1, 1 DOSE AFTER BIRTH
  4. NEVIRAPINE [Suspect]
     Indication: PROPHYLAXIS AGAINST HIV INFECTION
     Dosage: 200 MG - X1 - TRANSPLACENTALLY
     Route: 064
  5. ZIDOVUDINE [Suspect]
     Indication: PROPHYLAXIS AGAINST HIV INFECTION
     Dosage: 300MG - BID - TRANSPLACENTALLY
     Route: 064
  6. TENOFOVIR DISOPROXIL FUMARATE [Suspect]
     Indication: PROPHYLAXIS AGAINST HIV INFECTION
     Dosage: 2 TABLET - X1 - TRANSPLACENTALLY
     Route: 064

REACTIONS (5)
  - CAESAREAN SECTION [None]
  - DYSPNOEA [None]
  - LARYNGOMALACIA [None]
  - MATERNAL DRUGS AFFECTING FOETUS [None]
  - NERVOUS SYSTEM DISORDER [None]
